FAERS Safety Report 8099946-5 (Version None)
Quarter: 2012Q1

REPORT INFORMATION
  Report Type: 
  Country: None (occurrence: None)
  Receive Date: 20120129
  Receipt Date: 20111127
  Transmission Date: 20120608
  Serious: No
  Sender: FDA-Public Use
  Company Number: US-ABBOTT-11P-163-0878372-00

PATIENT
  Age: 54 Year
  Sex: Male

DRUGS (5)
  1. OXYCODONE HCL [Concomitant]
     Indication: ANKYLOSING SPONDYLITIS
  2. OXYCODONE HCL [Concomitant]
     Indication: ARTHRALGIA
  3. EXTENDED RELEASE MORPHINE [Concomitant]
     Indication: ANKYLOSING SPONDYLITIS
  4. EXTENDED RELEASE MORPHINE [Concomitant]
     Indication: ARTHRALGIA
  5. HUMIRA [Suspect]
     Indication: ANKYLOSING SPONDYLITIS
     Route: 058

REACTIONS (1)
  - LACERATION [None]
